FAERS Safety Report 13289546 (Version 2)
Quarter: 2017Q2

REPORT INFORMATION
  Report Type: Spontaneous
  Country: US (occurrence: US)
  Receive Date: 20170303
  Receipt Date: 20170403
  Transmission Date: 20170830
  Serious: No
  Sender: FDA-Public Use
  Company Number: US-ELI_LILLY_AND_COMPANY-US201701003138

PATIENT
  Age: 69 Year
  Sex: Male

DRUGS (3)
  1. CIALIS [Suspect]
     Active Substance: TADALAFIL
     Indication: BENIGN PROSTATIC HYPERPLASIA
     Dosage: 5 MG, QD
     Route: 048
  2. CIALIS [Suspect]
     Active Substance: TADALAFIL
     Indication: PROSTATIC DISORDER
     Dosage: 10 MG, QD
     Route: 048
  3. CIALIS [Suspect]
     Active Substance: TADALAFIL
     Dosage: 10 MG, QOD
     Route: 048

REACTIONS (6)
  - Insomnia [Recovering/Resolving]
  - Inappropriate schedule of drug administration [Unknown]
  - Dysuria [Recovering/Resolving]
  - Pollakiuria [Recovering/Resolving]
  - Prescribed overdose [Unknown]
  - Wrong technique in product usage process [Unknown]
